FAERS Safety Report 19486493 (Version 1)
Quarter: 2021Q3

REPORT INFORMATION
  Report Type: Spontaneous
  Country: FR (occurrence: FR)
  Receive Date: 20210702
  Receipt Date: 20210702
  Transmission Date: 20211014
  Serious: Yes (Hospitalization)
  Sender: FDA-Public Use
  Company Number: FR-MYLANLABS-2021M1038775

PATIENT
  Age: 88 Year
  Sex: Female
  Weight: 46.5 kg

DRUGS (17)
  1. MABTHERA [Concomitant]
     Active Substance: RITUXIMAB
     Dosage: J1 DE C1
     Route: 041
     Dates: start: 20201203, end: 20201203
  2. NATULAN [Concomitant]
     Active Substance: PROCARBAZINE HYDROCHLORIDE
     Dosage: DE J1 ? J7 DE C1. 100 MG/ M?
     Route: 048
     Dates: start: 20201203, end: 20201209
  3. EZETIMIBE. [Concomitant]
     Active Substance: EZETIMIBE
     Dosage: 1 DOSAGE FORM, QD
     Route: 048
     Dates: start: 2014, end: 20201208
  4. GAVISCON                           /00237601/ [Concomitant]
     Active Substance: ALUMINUM HYDROXIDE\MAGNESIUM CARBONATE
     Dosage: 1 DOSAGE FORM, QD
     Route: 048
  5. LARGACTIL                          /00011901/ [Concomitant]
     Active Substance: CHLORPROMAZINE
     Route: 048
  6. LOVENOX [Concomitant]
     Active Substance: ENOXAPARIN SODIUM
     Route: 058
  7. ATENOLOL. [Concomitant]
     Active Substance: ATENOLOL
     Dosage: 1 DOSAGE FORM, QD
     Route: 048
  8. SOLUPRED                           /00016217/ [Concomitant]
     Active Substance: PREDNISOLONE SODIUM METAZOATE
     Dosage: 40 MILLIGRAM, QD
     Route: 048
     Dates: start: 20201205, end: 20201211
  9. LEVOTHYROX [Concomitant]
     Active Substance: LEVOTHYROXINE
     Dosage: 75 ?G JOURS IMPAIRS, 88 ?G JOURS PAIRS
     Route: 048
  10. METHOTREXATE. [Suspect]
     Active Substance: METHOTREXATE
     Indication: CENTRAL NERVOUS SYSTEM LYMPHOMA
     Dosage: SUR DEUX HEURES. J1 DE C1.
     Route: 042
     Dates: start: 20201203, end: 20201203
  11. SETOFILM [Concomitant]
     Active Substance: ONDANSETRON
     Dosage: 1 DOSAGE FORM, QOD
     Route: 048
     Dates: start: 20201203, end: 20201207
  12. ALDACTAZINE [Concomitant]
     Active Substance: ALTHIAZIDE\SPIRONOLACTONE
     Dosage: 1 DOSAGE FORM, QD
     Route: 048
  13. FUNGIZONE [Concomitant]
     Active Substance: AMPHOTERICIN B
     Dosage: 2X/J
     Route: 048
  14. DIFFU K [Concomitant]
     Active Substance: POTASSIUM CHLORIDE
     Dosage: 6 DOSAGE FORM, QD
     Route: 048
  15. DOLIPRANE [Concomitant]
     Active Substance: ACETAMINOPHEN
     Dosage: 1 DOSAGE FORM
     Route: 048
     Dates: start: 20201206, end: 20201208
  16. PANTOPRAZOLE [Concomitant]
     Active Substance: PANTOPRAZOLE
     Dosage: 20 MILLIGRAM, QD
     Route: 048
     Dates: start: 2013, end: 20201208
  17. METHYLPREDNISOLONE. [Concomitant]
     Active Substance: METHYLPREDNISOLONE
     Dosage: 240 MG LE 03/12 PUIS 60 MG JUSQU^AU 06/12/20
     Route: 042
     Dates: start: 20201203, end: 20201206

REACTIONS (2)
  - Drug level increased [Recovering/Resolving]
  - Hepatic cytolysis [Recovered/Resolved]

NARRATIVE: CASE EVENT DATE: 20201205
